FAERS Safety Report 13399892 (Version 1)
Quarter: 2017Q2

REPORT INFORMATION
  Report Type: Spontaneous
  Country: US (occurrence: US)
  Receive Date: 20170404
  Receipt Date: 20170404
  Transmission Date: 20170830
  Serious: Yes (Death)
  Sender: FDA-Public Use
  Company Number: None

PATIENT
  Age: 55 Year
  Sex: Male
  Weight: 86.26 kg

DRUGS (13)
  1. TEMAZEPAM 7.5MG [Suspect]
     Active Substance: TEMAZEPAM
  2. SEROQUEL [Concomitant]
     Active Substance: QUETIAPINE FUMARATE
  3. OLANZIPINE 10MG [Suspect]
     Active Substance: OLANZAPINE
     Indication: ANXIETY
     Route: 048
     Dates: start: 2004, end: 2016
  4. FLUOXETINE [Suspect]
     Active Substance: FLUOXETINE HYDROCHLORIDE
     Indication: INSOMNIA
     Route: 048
     Dates: start: 2004, end: 2016
  5. OLANZIPINE 10MG [Suspect]
     Active Substance: OLANZAPINE
     Indication: DEPRESSION
     Route: 048
     Dates: start: 2004, end: 2016
  6. ZOLPIDEM [Suspect]
     Active Substance: ZOLPIDEM\ZOLPIDEM TARTRATE
  7. CERTRALINE [Concomitant]
  8. ATAVAN [Concomitant]
  9. OLANZIPINE 10MG [Suspect]
     Active Substance: OLANZAPINE
     Indication: POST-TRAUMATIC STRESS DISORDER
     Route: 048
     Dates: start: 2004, end: 2016
  10. ZOLOFT [Concomitant]
     Active Substance: SERTRALINE HYDROCHLORIDE
  11. DIAZEPAN [Concomitant]
     Active Substance: DIAZEPAM
  12. AMBIEN [Concomitant]
     Active Substance: ZOLPIDEM TARTRATE
  13. DEPAKOTE [Concomitant]
     Active Substance: DIVALPROEX SODIUM

REACTIONS (10)
  - Blood pressure decreased [None]
  - Cardiac disorder [None]
  - Toxicologic test abnormal [None]
  - Loss of personal independence in daily activities [None]
  - Heart rate decreased [None]
  - Tooth disorder [None]
  - Completed suicide [None]
  - Insomnia [None]
  - Feeding disorder [None]
  - Therapy cessation [None]

NARRATIVE: CASE EVENT DATE: 20160221
